FAERS Safety Report 18386550 (Version 1)
Quarter: 2020Q4

REPORT INFORMATION
  Report Type: Spontaneous
  Country: US (occurrence: US)
  Receive Date: 20201014
  Receipt Date: 20201014
  Transmission Date: 20210114
  Serious: No
  Sender: FDA-Public Use
  Company Number: None

PATIENT
  Age: 70 Day
  Sex: Female

DRUGS (8)
  1. TRULICITY [Concomitant]
     Active Substance: DULAGLUTIDE
  2. LOSARTON [Concomitant]
  3. ATIRVASTATIN [Concomitant]
  4. MONTELUKAST [Concomitant]
     Active Substance: MONTELUKAST SODIUM
  5. PREGABALIN. [Concomitant]
     Active Substance: PREGABALIN
  6. ALBUTEROL SULFATE. [Suspect]
     Active Substance: ALBUTEROL SULFATE
     Indication: ASTHMA
     Dosage: ?          QUANTITY:6 PUFF(S);?
     Route: 055
  7. TOUJEO [Concomitant]
     Active Substance: INSULIN GLARGINE
  8. ASA [Concomitant]
     Active Substance: ASPIRIN

REACTIONS (4)
  - Asthma [None]
  - Recalled product administered [None]
  - Drug delivery system issue [None]
  - Device issue [None]

NARRATIVE: CASE EVENT DATE: 20200602
